FAERS Safety Report 19140088 (Version 1)
Quarter: 2021Q2

REPORT INFORMATION
  Report Type: Spontaneous
  Country: US (occurrence: US)
  Receive Date: 20210415
  Receipt Date: 20210415
  Transmission Date: 20210717
  Serious: Yes (Disabling)
  Sender: FDA-Public Use
  Company Number: None

PATIENT

DRUGS (1)
  1. OLD SPICE WILDERNESS WITH LAVENDER [Suspect]
     Active Substance: ALUMINUM ZIRCONIUM TETRACHLOROHYDREX GLY
     Route: 061

REACTIONS (15)
  - Skin odour abnormal [None]
  - Pain of skin [None]
  - Application site haemorrhage [None]
  - Scar [None]
  - Skin infection [None]
  - Movement disorder [None]
  - Secretion discharge [None]
  - Application site scar [None]
  - Chemical burn [None]
  - Insomnia [None]
  - Skin injury [None]
  - Impaired work ability [None]
  - Loss of personal independence in daily activities [None]
  - Application site infection [None]
  - Application site discharge [None]

NARRATIVE: CASE EVENT DATE: 20210323
